FAERS Safety Report 23331202 (Version 2)
Quarter: 2024Q1

REPORT INFORMATION
  Report Type: Report from Study
  Country: GB (occurrence: GB)
  Receive Date: 20231222
  Receipt Date: 20240201
  Transmission Date: 20240409
  Serious: Yes (Other)
  Sender: FDA-Public Use
  Company Number: GB-SAMSUNG BIOEPIS-SB-2023-34245

PATIENT
  Sex: Female

DRUGS (1)
  1. ETANERCEPT [Suspect]
     Active Substance: ETANERCEPT
     Indication: Axial spondyloarthritis
     Route: 058
     Dates: start: 202308, end: 202312

REACTIONS (6)
  - Oropharyngeal blistering [Unknown]
  - Pharyngeal swelling [Unknown]
  - Cough [Unknown]
  - Abdominal pain [Unknown]
  - Nasopharyngitis [Unknown]
  - Drug ineffective [Unknown]
